FAERS Safety Report 5761315-8 (Version None)
Quarter: 2008Q2

REPORT INFORMATION
  Report Type: 
  Country: None (occurrence: None)
  Receive Date: 20080604
  Receipt Date: 20080528
  Transmission Date: 20081010
  Serious: No
  Sender: FDA-Public Use
  Company Number: APP200800467

PATIENT
  Age: 82 Year
  Sex: Male
  Weight: 75.7507 kg

DRUGS (15)
  1. HEPARIN SODIUM INJECTION [Suspect]
     Indication: PROPHYLAXIS
     Dosage: SEE IMAGE
     Route: 033
     Dates: start: 20080101
  2. HEPARIN SODIUM INJECTION [Suspect]
     Indication: PROPHYLAXIS
     Dosage: SEE IMAGE
     Route: 033
     Dates: start: 20080201
  3. DIOVAN HCT (CO-DIOVAN) [Concomitant]
  4. ALBUTEROL [Concomitant]
  5. PROVENTIL (SALBUTAMOL) [Concomitant]
  6. EPOGEN [Concomitant]
  7. PLAVIX (CLOPIDOREL) [Concomitant]
  8. GLYBURIDE [Concomitant]
  9. LANTUS/NOVOLG (INSULIN GLARGINE) [Concomitant]
  10. LIPITOR [Concomitant]
  11. FOLIC ACID [Concomitant]
  12. NEOPLEX (COMPOUND ANEURINE) [Concomitant]
  13. NORVASC [Concomitant]
  14. PHOSLO [Concomitant]
  15. PROPYL XL (PROPYLTHIOURACIL) [Concomitant]

REACTIONS (15)
  - ABDOMINAL PAIN [None]
  - ANOREXIA [None]
  - BLISTER [None]
  - BLOOD GLUCOSE DECREASED [None]
  - CHAPPED LIPS [None]
  - DIARRHOEA [None]
  - ERYTHEMA [None]
  - FACE OEDEMA [None]
  - HYPERHIDROSIS [None]
  - MALAISE [None]
  - NAUSEA [None]
  - PHARMACEUTICAL PRODUCT COMPLAINT [None]
  - RETCHING [None]
  - SOMNOLENCE [None]
  - VOMITING [None]
